FAERS Safety Report 10051012 (Version 1)
Quarter: 2014Q2

REPORT INFORMATION
  Report Type: Report from Study
  Country: BR (occurrence: BR)
  Receive Date: 20140401
  Receipt Date: 20140401
  Transmission Date: 20141212
  Serious: Yes (Disabling, Other)
  Sender: FDA-Public Use
  Company Number: BR-BAYER-2014-043530

PATIENT
  Age: 46 Year
  Sex: Male

DRUGS (2)
  1. BETAFERON [Suspect]
     Indication: MULTIPLE SCLEROSIS
     Dosage: 1 ML, QOD
     Route: 058
     Dates: start: 2009, end: 201312
  2. BETAJECT COMFORT [Suspect]

REACTIONS (5)
  - Injection site ulcer [Not Recovered/Not Resolved]
  - Gait disturbance [None]
  - Injection site vesicles [None]
  - Blister rupture [None]
  - Wound complication [None]
